FAERS Safety Report 8883139 (Version 1)
Quarter: 2012Q4

REPORT INFORMATION
  Report Type: 
  Country: US (occurrence: US)
  Receive Date: 20121102
  Receipt Date: 20121102
  Transmission Date: 20130627
  Serious: Yes (Other)
  Sender: FDA-Public Use
  Company Number: US-ABBOTT-12P-163-0904694-00

PATIENT
  Sex: Male

DRUGS (1)
  1. CLARITHROMYCIN [Suspect]
     Indication: HELICOBACTER INFECTION
     Dates: start: 20111201

REACTIONS (8)
  - Liver injury [Unknown]
  - Abdominal pain [Unknown]
  - Nausea [Unknown]
  - Jaundice [Unknown]
  - Ocular icterus [Unknown]
  - Fatigue [Unknown]
  - General physical health deterioration [Unknown]
  - General physical health deterioration [Unknown]
